FAERS Safety Report 9687765 (Version 1)
Quarter: 2013Q4

REPORT INFORMATION
  Report Type: Spontaneous
  Country: US (occurrence: US)
  Receive Date: 20131114
  Receipt Date: 20131114
  Transmission Date: 20140711
  Serious: Yes (Other)
  Sender: FDA-Public Use
  Company Number: US-PFIZER INC-2013323523

PATIENT
  Age: 47 Year
  Sex: Female
  Weight: 56.69 kg

DRUGS (13)
  1. XELJANZ [Suspect]
     Indication: RHEUMATOID ARTHRITIS
     Dosage: 5 MG, 2X/DAY
     Route: 048
     Dates: start: 2013
  2. ADDERALL [Concomitant]
     Dosage: 20 MG, UNK
  3. CALCIUM [Concomitant]
     Dosage: 600 MG, UNK
  4. CHLOROQUINE PHOSPHATE [Concomitant]
     Dosage: 250 MG, UNK
  5. IRON [Concomitant]
     Dosage: UNK
  6. LASIX [Concomitant]
     Dosage: 40 MG, UNK
  7. NITROFURANTOIN [Concomitant]
     Dosage: 100 MG, UNK
  8. OXYCODONE HYDROCHLORIDE [Concomitant]
     Dosage: UNK
  9. PLAQUENIL [Concomitant]
     Dosage: 200 MG, UNK
  10. TRILEPTAL [Concomitant]
     Dosage: 150 MG, UNK
  11. VITAMIN B-12 [Concomitant]
     Dosage: UNK
  12. VITAMIN D [Concomitant]
     Dosage: UNK
  13. XANAX [Concomitant]
     Dosage: 0.5 MG, UNK

REACTIONS (3)
  - Medication error [Unknown]
  - Rheumatoid arthritis [Not Recovered/Not Resolved]
  - Influenza like illness [Not Recovered/Not Resolved]
